FAERS Safety Report 8572744-1 (Version None)
Quarter: 2012Q3

REPORT INFORMATION
  Report Type: 
  Country: None (occurrence: None)
  Receive Date: 20120806
  Receipt Date: 20120801
  Transmission Date: 20120928
  Serious: Yes (Hospitalization)
  Sender: FDA-Public Use
  Company Number: GB-ROCHE-1096145

PATIENT
  Age: 69 Year
  Sex: Male
  Weight: 83 kg

DRUGS (5)
  1. PREGABALIN [Concomitant]
  2. NAPROXEN [Suspect]
     Indication: ARTHRITIS
     Route: 048
     Dates: start: 20120626, end: 20120701
  3. BACLOFEN [Concomitant]
  4. FENTANYL CITRATE [Concomitant]
  5. ZOPICLONE [Concomitant]

REACTIONS (3)
  - HAEMOGLOBIN DECREASED [None]
  - MELAENA [None]
  - DUODENAL ULCER PERFORATION [None]
